FAERS Safety Report 23575756 (Version 1)
Quarter: 2024Q1

REPORT INFORMATION
  Report Type: Spontaneous
  Country: CN (occurrence: CN)
  Receive Date: 20240228
  Receipt Date: 20240228
  Transmission Date: 20240409
  Serious: Yes (Life-Threatening, Other)
  Sender: FDA-Public Use
  Company Number: CN-BAYER-2024A030911

PATIENT
  Age: 68 Year
  Sex: Male

DRUGS (1)
  1. ULTRAVIST [Suspect]
     Active Substance: IOPROMIDE
     Indication: Computerised tomogram
     Dosage: 120 ML, ONCE
     Route: 042
     Dates: start: 20240222, end: 20240222

REACTIONS (8)
  - Blood pressure decreased [Recovered/Resolved]
  - Face oedema [Recovering/Resolving]
  - Hypoaesthesia [Recovering/Resolving]
  - Somnolence [Recovering/Resolving]
  - Loss of consciousness [Recovered/Resolved]
  - Hyperhidrosis [None]
  - Erythema [Recovered/Resolved]
  - Eyelid oedema [None]

NARRATIVE: CASE EVENT DATE: 20240222
